FAERS Safety Report 9270466 (Version 1)
Quarter: 2013Q2

REPORT INFORMATION
  Report Type: Spontaneous
  Country: BR (occurrence: BR)
  Receive Date: 20130503
  Receipt Date: 20130503
  Transmission Date: 20140414
  Serious: Yes (Other)
  Sender: FDA-Public Use
  Company Number: BR-PFIZER INC-2013135456

PATIENT
  Age: 13 Year
  Sex: Female
  Weight: 41 kg

DRUGS (2)
  1. GENOTROPIN [Suspect]
     Indication: MENSTRUAL CYCLE MANAGEMENT
     Dosage: 1.2 MG, UNK
     Dates: start: 201111, end: 2012
  2. GENOTROPIN [Suspect]
     Dosage: 2.00 MG, DAILY
     Dates: start: 2012

REACTIONS (4)
  - Epiphyses premature fusion [Not Recovered/Not Resolved]
  - Foot deformity [Not Recovered/Not Resolved]
  - Off label use [Not Recovered/Not Resolved]
  - Drug ineffective for unapproved indication [Unknown]
